FAERS Safety Report 9009070 (Version 1)
Quarter: 2013Q1

REPORT INFORMATION
  Report Type: Spontaneous
  Country: US (occurrence: US)
  Receive Date: 20130111
  Receipt Date: 20130111
  Transmission Date: 20140127
  Serious: Yes (Hospitalization, Other)
  Sender: FDA-Public Use
  Company Number: US-JNJFOC-20130101078

PATIENT
  Age: 54 None
  Sex: Female
  Weight: 56.7 kg

DRUGS (6)
  1. REMICADE [Suspect]
     Indication: CROHN^S DISEASE
     Route: 042
     Dates: start: 20120308, end: 20120308
  2. REMICADE [Suspect]
     Indication: CROHN^S DISEASE
     Route: 042
     Dates: start: 2005
  3. UNSPECIFIED [Suspect]
     Indication: CONTRACEPTION
     Route: 065
  4. CALTRATE WITH VITAMIN D [Concomitant]
     Route: 065
  5. ZYRTEC [Concomitant]
     Route: 048
  6. UNKNOWN MEDICATION [Concomitant]
     Indication: MULTIPLE ALLERGIES
     Route: 045

REACTIONS (10)
  - Disseminated intravascular coagulation [Recovered/Resolved]
  - Renal failure [Recovered/Resolved]
  - Thrombosis [Recovered/Resolved]
  - Rectal haemorrhage [Recovered/Resolved]
  - Pulmonary oedema [Recovered/Resolved]
  - Abdominal pain [Recovered/Resolved]
  - Clostridium difficile infection [Recovered/Resolved]
  - Muscle atrophy [Recovered/Resolved]
  - Periarthritis [Recovering/Resolving]
  - Muscle spasms [Recovered/Resolved]
